FAERS Safety Report 5955958-6 (Version None)
Quarter: 2008Q4

REPORT INFORMATION
  Report Type: 
  Country: None (occurrence: None)
  Receive Date: 20081112
  Receipt Date: 20081031
  Transmission Date: 20090506
  Serious: Yes (Hospitalization)
  Sender: FDA-Public Use
  Company Number: 430019K08USA

PATIENT
  Age: 47 Year
  Sex: Female
  Weight: 75 kg

DRUGS (2)
  1. NOVANTRONE [Suspect]
     Indication: MULTIPLE SCLEROSIS
     Dosage: 15 MG/M2, 1 IN 3 MONTHS
     Dates: start: 20070905
  2. IMMUNE GLOBULIN NOS [Concomitant]

REACTIONS (4)
  - CATHETER RELATED INFECTION [None]
  - INCISION SITE INFECTION [None]
  - WOUND [None]
  - WOUND SECRETION [None]
